FAERS Safety Report 10602931 (Version 2)
Quarter: 2014Q4

REPORT INFORMATION
  Report Type: Spontaneous
  Country: GB (occurrence: GB)
  Receive Date: 20141124
  Receipt Date: 20141218
  Transmission Date: 20150529
  Serious: Yes (Disabling, Other)
  Sender: FDA-Public Use
  Company Number: GB-WATSON-2014-25065

PATIENT
  Age: 41 Year
  Sex: Male

DRUGS (1)
  1. SIMVASTATIN (UNKNOWN) [Suspect]
     Active Substance: SIMVASTATIN
     Indication: BLOOD CHOLESTEROL INCREASED
     Dosage: UNK (DIFFERENT DOSE)
     Route: 048

REACTIONS (17)
  - Muscular weakness [Unknown]
  - Abdominal distension [Unknown]
  - Flatulence [Unknown]
  - Diarrhoea [Unknown]
  - Quality of life decreased [Unknown]
  - Activities of daily living impaired [Unknown]
  - Hyperhidrosis [Unknown]
  - Balance disorder [Unknown]
  - Fatigue [Unknown]
  - Psychiatric symptom [Unknown]
  - Abdominal pain [Unknown]
  - Dizziness [Unknown]
  - Self esteem decreased [Unknown]
  - Myalgia [Unknown]
  - Somnolence [Unknown]
  - Drug ineffective [Unknown]
  - Impaired work ability [Unknown]
